FAERS Safety Report 18315200 (Version 4)
Quarter: 2021Q2

REPORT INFORMATION
  Report Type: Report from Study
  Country: US (occurrence: US)
  Receive Date: 20200926
  Receipt Date: 20210510
  Transmission Date: 20210717
  Serious: Yes (Other)
  Sender: FDA-Public Use
  Company Number: NVSC2020US257037

PATIENT
  Sex: Male

DRUGS (1)
  1. VOTRIENT [Suspect]
     Active Substance: PAZOPANIB HYDROCHLORIDE
     Indication: PRODUCT USED FOR UNKNOWN INDICATION
     Dosage: UNK
     Route: 065
     Dates: end: 20200907

REACTIONS (7)
  - Incorrect dose administered [Unknown]
  - Product availability issue [Unknown]
  - Neoplasm malignant [Unknown]
  - Hypoacusis [Unknown]
  - Metastasis [Unknown]
  - Neoplasm progression [Unknown]
  - Gait disturbance [Unknown]
